FAERS Safety Report 24540114 (Version 1)
Quarter: 2024Q4

REPORT INFORMATION
  Report Type: Spontaneous
  Country: US (occurrence: US)
  Receive Date: 20241023
  Receipt Date: 20241023
  Transmission Date: 20250115
  Serious: Yes (Death, Other)
  Sender: GLAND PHARMA LTD
  Company Number: US-GLANDPHARMA-US-2024GLNLIT00887

PATIENT
  Sex: Male

DRUGS (2)
  1. LEVETIRACETAM [Suspect]
     Active Substance: LEVETIRACETAM
     Indication: Seizure
     Route: 065
  2. METHOTREXATE [Suspect]
     Active Substance: METHOTREXATE
     Indication: Product used for unknown indication
     Route: 065

REACTIONS (9)
  - Acute kidney injury [Fatal]
  - Hepatic function abnormal [Fatal]
  - Condition aggravated [Fatal]
  - Epidermal necrosis [Unknown]
  - Toxicity to various agents [Fatal]
  - Stomatitis [Unknown]
  - Rash erythematous [Unknown]
  - Skin atrophy [Unknown]
  - Drug interaction [Unknown]
